FAERS Safety Report 10832963 (Version 1)
Quarter: 2015Q1

REPORT INFORMATION
  Report Type: Report from Study
  Country: US (occurrence: US)
  Receive Date: 20150219
  Receipt Date: 20150219
  Transmission Date: 20150721
  Serious: No
  Sender: FDA-Public Use
  Company Number: US-ABBVIE-14P-163-1200350-00

PATIENT
  Age: 44 Year
  Sex: Female

DRUGS (9)
  1. SINGULAIR [Concomitant]
     Active Substance: MONTELUKAST SODIUM
     Indication: ASTHMA
  2. TRAZODONE [Concomitant]
     Active Substance: TRAZODONE HYDROCHLORIDE
     Indication: INSOMNIA
     Dosage: AT BEDTIME
  3. LEVSIN [Concomitant]
     Active Substance: HYOSCYAMINE SULFATE
     Indication: GASTRIC DISORDER
  4. ADVAIR INH [Concomitant]
     Indication: ASTHMA
     Dosage: 250/50 INHALED
  5. HUMIRA [Suspect]
     Active Substance: ADALIMUMAB
     Indication: CROHN^S DISEASE
     Dates: start: 20140207
  6. CIPROFLOXIN [Concomitant]
     Active Substance: CIPROFLOXACIN
     Indication: GASTRIC DISORDER
  7. BENTYL [Concomitant]
     Active Substance: DICYCLOMINE HYDROCHLORIDE
     Indication: GASTRIC DISORDER
  8. SINGULAIR [Concomitant]
     Active Substance: MONTELUKAST SODIUM
     Indication: HYPERSENSITIVITY
  9. ALBUTEROL INHALER [Concomitant]
     Active Substance: ALBUTEROL
     Indication: ASTHMA

REACTIONS (2)
  - Heart rate increased [Not Recovered/Not Resolved]
  - Flushing [Not Recovered/Not Resolved]

NARRATIVE: CASE EVENT DATE: 20140207
